FAERS Safety Report 25371843 (Version 1)
Quarter: 2025Q2

REPORT INFORMATION
  Report Type: Spontaneous
  Country: US (occurrence: US)
  Receive Date: 20250529
  Receipt Date: 20250529
  Transmission Date: 20250717
  Serious: No
  Sender: AUROBINDO
  Company Number: US-AUROBINDO-AUR-APL-2025-006798

PATIENT

DRUGS (1)
  1. VENLAFAXINE HYDROCHLORIDE [Suspect]
     Active Substance: VENLAFAXINE HYDROCHLORIDE
     Indication: Product used for unknown indication
     Route: 065

REACTIONS (7)
  - Lethargy [Unknown]
  - Electric shock sensation [Unknown]
  - Emotional disorder [Unknown]
  - Chest pain [Unknown]
  - Anxiety [Unknown]
  - Condition aggravated [Unknown]
  - Product quality issue [Unknown]
